FAERS Safety Report 9748851 (Version 3)
Quarter: 2014Q3

REPORT INFORMATION
  Report Type: Spontaneous
  Country: US (occurrence: US)
  Receive Date: 20131212
  Receipt Date: 20140716
  Transmission Date: 20150326
  Serious: Yes (Death, Hospitalization, Other)
  Sender: FDA-Public Use
  Company Number: US-BAYER-2013-150369

PATIENT
  Age: 33 Year
  Sex: Female

DRUGS (1)
  1. MIRENA [Suspect]
     Active Substance: LEVONORGESTREL
     Indication: CONTRACEPTION
     Dosage: 20 MCG/24HR, CONT
     Route: 015
     Dates: start: 201106, end: 20130923

REACTIONS (11)
  - Abdominal pain [None]
  - Dehydration [None]
  - Uterine perforation [None]
  - Cardiac flutter [None]
  - Diarrhoea [None]
  - Blood potassium decreased [None]
  - General physical health deterioration [None]
  - Device issue [None]
  - Immune system disorder [Fatal]
  - Enteritis [None]
  - Appendicectomy [None]

NARRATIVE: CASE EVENT DATE: 201106
